FAERS Safety Report 5272404-9 (Version None)
Quarter: 2007Q1

REPORT INFORMATION
  Report Type: 
  Country: None (occurrence: None)
  Receive Date: 20070322
  Receipt Date: 20070321
  Transmission Date: 20070707
  Serious: Yes (Other)
  Sender: FDA-Public Use
  Company Number: FR-BRISTOL-MYERS SQUIBB COMPANY-13381405

PATIENT
  Age: 41 Year
  Sex: Female

DRUGS (3)
  1. REYATAZ [Suspect]
     Indication: HIV INFECTION
     Route: 048
  2. NORVIR [Concomitant]
  3. COMBIVIR [Concomitant]
     Dosage: DOSAGE FORM-TABLET

REACTIONS (4)
  - NORMAL NEWBORN [None]
  - PRE-ECLAMPSIA [None]
  - PREGNANCY [None]
  - PREGNANCY INDUCED HYPERTENSION [None]
